FAERS Safety Report 9818734 (Version 1)
Quarter: 2014Q1

REPORT INFORMATION
  Report Type: Report from Study
  Country: DE (occurrence: DE)
  Receive Date: 20140115
  Receipt Date: 20140115
  Transmission Date: 20141002
  Serious: Yes (Other)
  Sender: FDA-Public Use
  Company Number: DE-BAXTER-2014BAX001905

PATIENT
  Sex: Female

DRUGS (1)
  1. HOLOXAN 3.00 G [Suspect]
     Indication: NEOPLASM MALIGNANT
     Dosage: A CUMULATIVE DOSE GREATER THAN 42000 MG/M2
     Route: 065

REACTIONS (2)
  - Maternal exposure before pregnancy [Recovered/Resolved]
  - No adverse event [Recovered/Resolved]
